FAERS Safety Report 17739710 (Version 1)
Quarter: 2020Q2

REPORT INFORMATION
  Report Type: Spontaneous
  Country: FR (occurrence: FR)
  Receive Date: 20200504
  Receipt Date: 20200504
  Transmission Date: 20200714
  Serious: Yes (Hospitalization)
  Sender: FDA-Public Use
  Company Number: FR-ROCHE-2591022

PATIENT
  Age: 64 Year
  Sex: Female

DRUGS (9)
  1. IMOVANE [Concomitant]
     Active Substance: ZOPICLONE
  2. DIAZEPAM. [Suspect]
     Active Substance: DIAZEPAM
     Indication: PSYCHOTIC DISORDER
     Route: 048
     Dates: end: 20200303
  3. FUROSEMIDE. [Concomitant]
     Active Substance: FUROSEMIDE
  4. SIMVASTATINE [Concomitant]
     Active Substance: SIMVASTATIN
  5. DEPAKOTE [Concomitant]
     Active Substance: DIVALPROEX SODIUM
  6. DUPHALAC [Concomitant]
     Active Substance: LACTULOSE
  7. LANTUS [Concomitant]
     Active Substance: INSULIN GLARGINE
  8. KAYEXALATE [Concomitant]
     Active Substance: SODIUM POLYSTYRENE SULFONATE
  9. BISOPROLOL FUMARATE. [Concomitant]
     Active Substance: BISOPROLOL FUMARATE

REACTIONS (1)
  - Cardiac failure [Not Recovered/Not Resolved]

NARRATIVE: CASE EVENT DATE: 2019
